FAERS Safety Report 9937282 (Version 2)
Quarter: 2014Q1

REPORT INFORMATION
  Report Type: Spontaneous
  Country: US (occurrence: US)
  Receive Date: 20140302
  Receipt Date: 20140302
  Transmission Date: 20141002
  Serious: Yes (Other)
  Sender: FDA-Public Use
  Company Number: US-GE HEALTHCARE MEDICAL DIAGNOSTICS-OSCN-PR-1004S-0087

PATIENT
  Sex: Female

DRUGS (3)
  1. OMNISCAN [Suspect]
     Indication: UTERINE HAEMORRHAGE
     Route: 042
     Dates: start: 20050316, end: 20050316
  2. OMNISCAN [Suspect]
     Indication: PRODUCT USED FOR UNKNOWN INDICATION
     Route: 042
     Dates: start: 20050426, end: 20050426
  3. GADOLINIUM (UNSPECIFIED) [Suspect]
     Dates: start: 20050416, end: 20050416

REACTIONS (1)
  - Nephrogenic systemic fibrosis [Not Recovered/Not Resolved]
